FAERS Safety Report 6547215-4 (Version None)
Quarter: 2010Q1

REPORT INFORMATION
  Report Type: 
  Country: None (occurrence: None)
  Receive Date: 20100122
  Receipt Date: 20100112
  Transmission Date: 20100710
  Serious: Yes (Hospitalization, Other)
  Sender: FDA-Public Use
  Company Number: CA-JNJFOC-20091105970

PATIENT
  Sex: Male
  Weight: 72.7 kg

DRUGS (2)
  1. REMICADE [Suspect]
     Indication: CROHN'S DISEASE
     Dosage: 15 INFUSIONS TOTAL
     Route: 042
     Dates: start: 20071015, end: 20091119
  2. INDOMETHACIN [Concomitant]

REACTIONS (4)
  - ABSCESS [None]
  - FISTULA REPAIR [None]
  - ILEOSTOMY [None]
  - INTESTINAL RESECTION [None]
